FAERS Safety Report 23803654 (Version 1)
Quarter: 2024Q2

REPORT INFORMATION
  Report Type: Spontaneous
  Country: US (occurrence: None)
  Receive Date: 20240430
  Receipt Date: 20240430
  Transmission Date: 20240715
  Serious: No
  Sender: FDA-Public Use
  Company Number: None

PATIENT
  Age: 28 Year
  Sex: Male

DRUGS (1)
  1. GABAPENTIN [Suspect]
     Active Substance: GABAPENTIN
     Indication: Pain
     Dates: start: 20230202, end: 20230205

REACTIONS (8)
  - Pyrexia [None]
  - Rash maculo-papular [None]
  - Pancytopenia [None]
  - Serum ferritin increased [None]
  - Pleural effusion [None]
  - Splenomegaly [None]
  - Pneumonia [None]
  - Drug reaction with eosinophilia and systemic symptoms [None]

NARRATIVE: CASE EVENT DATE: 20230216
